FAERS Safety Report 8326220-1 (Version None)
Quarter: 2012Q2

REPORT INFORMATION
  Report Type: 
  Country: None (occurrence: None)
  Receive Date: 20120427
  Receipt Date: 20120412
  Transmission Date: 20120825
  Serious: Yes (Hospitalization, Other)
  Sender: FDA-Public Use
  Company Number: 2012MA005030

PATIENT
  Age: 57 Year
  Sex: Female

DRUGS (7)
  1. GEMCITABINE HYDROCHLORIDE [Suspect]
     Indication: CHEMOTHERAPY
     Dosage: IV
     Route: 042
  2. ACETAMINOPHEN AND HYDROCODONE BITARTRATE [Concomitant]
  3. ALPRAZOLAM [Concomitant]
  4. PROCHLORPERAZINE [Concomitant]
  5. SERTRALINE HYDROCHLORIDE [Concomitant]
  6. LANTUS [Concomitant]
  7. METOPROLOL TARTRATE [Concomitant]

REACTIONS (9)
  - MYOSITIS [None]
  - DISCOMFORT [None]
  - ERYTHEMA [None]
  - ISCHAEMIA [None]
  - JOINT CREPITATION [None]
  - OEDEMA PERIPHERAL [None]
  - BLOOD PRESSURE SYSTOLIC INCREASED [None]
  - PAIN IN EXTREMITY [None]
  - CACHEXIA [None]
